FAERS Safety Report 4485452-3 (Version None)
Quarter: 2004Q4

REPORT INFORMATION
  Report Type: 
  Country: None (occurrence: None)
  Receive Date: 20041026
  Receipt Date: 20040426
  Transmission Date: 20050328
  Serious: Yes (Hospitalization)
  Sender: FDA-Public Use
  Company Number: IT-BRISTOL-MYERS SQUIBB COMPANY-12570966

PATIENT
  Age: 39 Year
  Sex: Male

DRUGS (3)
  1. ARIPIPRAZOLE [Suspect]
     Indication: SCHIZOPHRENIA
     Route: 048
     Dates: start: 20040401, end: 20040428
  2. LORAZEPAM [Concomitant]
     Dates: start: 20030601
  3. ATENOLOL [Concomitant]
     Dates: start: 20020701

REACTIONS (1)
  - SCHIZOPHRENIA [None]
